FAERS Safety Report 5752103-7 (Version None)
Quarter: 2008Q2

REPORT INFORMATION
  Report Type: 
  Country: None (occurrence: None)
  Receive Date: 20080529
  Receipt Date: 20080522
  Transmission Date: 20081010
  Serious: Yes (Hospitalization, Other)
  Sender: FDA-Public Use
  Company Number: US-AVENTIS-200812385US

PATIENT
  Sex: Female
  Weight: 59.87 kg

DRUGS (11)
  1. LOVENOX [Suspect]
     Route: 058
     Dates: start: 20080117, end: 20080214
  2. COUMADIN [Suspect]
     Dates: start: 20080124, end: 20080215
  3. COUMADIN [Suspect]
  4. LISINOPRIL [Concomitant]
     Indication: HYPERTENSION
     Dates: start: 20080124, end: 20080215
  5. ATENOLOL [Concomitant]
     Indication: HYPERTENSION
     Dates: start: 20080124, end: 20080215
  6. DIGOXIN [Concomitant]
     Dates: start: 20080124, end: 20080215
  7. NEURONTIN [Concomitant]
     Dates: start: 20080124, end: 20080215
  8. LIDODERM [Concomitant]
     Dosage: DOSE: BACK AND RT KNEE IN AM OFF PM
  9. VITAMIN CAP [Concomitant]
     Dosage: DOSE: UNK
  10. PERCOCET-5 [Concomitant]
     Dosage: DOSE: ONE Q6H/PRN
  11. TYLENOL [Concomitant]
     Dosage: DOSE: PRN

REACTIONS (12)
  - ABDOMINAL DISTENSION [None]
  - ABDOMINAL TENDERNESS [None]
  - ABDOMINAL WALL HAEMATOMA [None]
  - ANAEMIA [None]
  - BLOOD PRESSURE DECREASED [None]
  - DECREASED APPETITE [None]
  - ECCHYMOSIS [None]
  - HAEMOGLOBIN DECREASED [None]
  - INTERNATIONAL NORMALISED RATIO INCREASED [None]
  - INTRA-ABDOMINAL HAEMORRHAGE [None]
  - NAUSEA [None]
  - WHITE BLOOD CELL COUNT INCREASED [None]
